FAERS Safety Report 8196227-6 (Version None)
Quarter: 2012Q1

REPORT INFORMATION
  Report Type: 
  Country: None (occurrence: None)
  Receive Date: 20120309
  Receipt Date: 20120229
  Transmission Date: 20120608
  Serious: No
  Sender: FDA-Public Use
  Company Number: US-PFIZER INC-2012058438

PATIENT
  Sex: Female

DRUGS (6)
  1. TETRACYCLINE HCL [Suspect]
  2. VICODIN [Suspect]
  3. METRONIDAZOLE [Suspect]
  4. ULTRAM [Suspect]
  5. AUGMENTIN '125' [Suspect]
  6. DARVOCET [Suspect]

REACTIONS (3)
  - DIZZINESS [None]
  - VOMITING [None]
  - DIARRHOEA [None]
